FAERS Safety Report 8019368-2 (Version None)
Quarter: 2012Q1

REPORT INFORMATION
  Report Type: 
  Country: None (occurrence: None)
  Receive Date: 20120103
  Receipt Date: 20111222
  Transmission Date: 20120608
  Serious: Yes (Hospitalization, Other)
  Sender: FDA-Public Use
  Company Number: PHHY2011NL107422

PATIENT
  Sex: Female
  Weight: 52 kg

DRUGS (5)
  1. MORPHINE [Concomitant]
  2. ZOMETA [Suspect]
     Indication: HYPERCALCAEMIA
     Dosage: 4 MG/ 5 ML ONCE PER 28 DAYS
     Dates: start: 20111024
  3. SPIRIVA [Concomitant]
  4. ZOMETA [Suspect]
     Dosage: 4 MG/ 5 ML ONCE PER 28 DAYS
     Dates: start: 20111207
  5. FENTANYL [Concomitant]

REACTIONS (4)
  - SEDATION [None]
  - LUNG NEOPLASM [None]
  - CHEST DISCOMFORT [None]
  - TERMINAL STATE [None]
